FAERS Safety Report 12522977 (Version 3)
Quarter: 2021Q2

REPORT INFORMATION
  Report Type: Report from Study
  Country: AU (occurrence: AU)
  Receive Date: 20160701
  Receipt Date: 20210426
  Transmission Date: 20210716
  Serious: Yes (Other)
  Sender: FDA-Public Use
  Company Number: AU-GILEAD-2016-0220137

PATIENT
  Age: 53 Year
  Sex: Female
  Weight: 47.4 kg

DRUGS (14)
  1. SOFOSBUVIR W/VELPATASVIR [Suspect]
     Active Substance: SOFOSBUVIR\VELPATASVIR
     Indication: CHRONIC HEPATITIS C
     Dosage: 1 DF, QD
     Route: 048
     Dates: start: 20160518, end: 20160620
  2. ASPIRIN                            /00002701/ [Concomitant]
     Active Substance: ASPIRIN
  3. SENNA                              /00142201/ [Concomitant]
     Active Substance: SENNA LEAF
  4. IBUPROFEN. [Concomitant]
     Active Substance: IBUPROFEN
  5. DICLOFENAC [Concomitant]
     Active Substance: DICLOFENAC
     Route: 061
  6. HEPATITIS A VACCINE [Concomitant]
     Active Substance: HEPATITIS A VIRUS STRAIN HM175 ANTIGEN (FORMALDEHYDE INACTIVATED)
     Dosage: UNK
     Dates: start: 20160530
  7. DIAZEPAM. [Concomitant]
     Active Substance: DIAZEPAM
  8. LACTULOSE. [Concomitant]
     Active Substance: LACTULOSE
  9. SOFOSBUVIR W/VELPATASVIR [Suspect]
     Active Substance: SOFOSBUVIR\VELPATASVIR
     Dosage: 1 DF, QD
     Route: 048
     Dates: start: 20160622
  10. FISH OIL [Concomitant]
     Active Substance: FISH OIL
  11. ADACEL TDAP [Concomitant]
     Active Substance: TETANUS TOXOID, REDUCED DIPHTHERIA TOXOID AND ACELLULAR PERTUSSIS VACCINE ADSORBED, TDAP
     Dosage: UNK
     Dates: start: 20160523
  12. SUMATRIPTAN. [Concomitant]
     Active Substance: SUMATRIPTAN
  13. METHADONE [Concomitant]
     Active Substance: METHADONE HYDROCHLORIDE
  14. BENADRYL [Concomitant]
     Active Substance: DIPHENHYDRAMINE HYDROCHLORIDE
     Dosage: UNK, PRN

REACTIONS (1)
  - Rhabdomyolysis [Recovered/Resolved]

NARRATIVE: CASE EVENT DATE: 20160617
